FAERS Safety Report 17611674 (Version 1)
Quarter: 2020Q2

REPORT INFORMATION
  Report Type: Report from Study
  Country: KR (occurrence: KR)
  Receive Date: 20200401
  Receipt Date: 20200401
  Transmission Date: 20200713
  Serious: Yes (Other)
  Sender: FDA-Public Use
  Company Number: KR-AMGEN-KORSL2020051236

PATIENT
  Age: 79 Year
  Sex: Female

DRUGS (2)
  1. VITAMIN D [COLECALCIFEROL] [Concomitant]
     Active Substance: CHOLECALCIFEROL
  2. PROLIA [Suspect]
     Active Substance: DENOSUMAB
     Indication: OSTEOPOROSIS
     Dosage: UNK, UNK
     Route: 065
     Dates: start: 20180528, end: 201811

REACTIONS (1)
  - Tooth disorder [Recovering/Resolving]

NARRATIVE: CASE EVENT DATE: 2019
